FAERS Safety Report 5487114-2 (Version None)
Quarter: 2007Q4

REPORT INFORMATION
  Report Type: 
  Country: None (occurrence: None)
  Receive Date: 20071016
  Receipt Date: 20071004
  Transmission Date: 20080405
  Serious: Yes (Other)
  Sender: FDA-Public Use
  Company Number: JP-ROCHE-513647

PATIENT
  Age: 79 Week
  Sex: Female
  Weight: 10 kg

DRUGS (7)
  1. ROCEPHIN [Suspect]
     Indication: BRONCHITIS
     Route: 041
     Dates: start: 20070809, end: 20070809
  2. ZITHROMAX [Suspect]
     Indication: BRONCHITIS
     Dosage: DOSE FORM REPORTED AS ORAL FORMULATION.
     Route: 048
     Dates: start: 20070809, end: 20070810
  3. VENETLIN [Concomitant]
     Route: 048
     Dates: start: 20070806, end: 20070810
  4. BISOLVON [Concomitant]
     Dates: start: 20070806, end: 20070810
  5. ASVERIN [Concomitant]
     Route: 048
     Dates: start: 20070806, end: 20070810
  6. ZADITEN [Concomitant]
     Dates: start: 20070809, end: 20070810
  7. PERIACTIN [Concomitant]
     Dosage: DIVIDED INTO THREE DOSES.
     Route: 048
     Dates: start: 20070809, end: 20070810

REACTIONS (1)
  - ERYTHEMA MULTIFORME [None]
